FAERS Safety Report 21172384 (Version 1)
Quarter: 2022Q3

REPORT INFORMATION
  Report Type: Spontaneous
  Country: US (occurrence: US)
  Receive Date: 20220804
  Receipt Date: 20220804
  Transmission Date: 20221027
  Serious: No
  Sender: FDA-Public Use
  Company Number: US-PFIZER INC-2020322707

PATIENT
  Age: 84 Year
  Sex: Female

DRUGS (1)
  1. XELJANZ [Suspect]
     Active Substance: TOFACITINIB CITRATE
     Dosage: 5 MG, ONE TABLET ONCE DAILY ON ODD DAYS OF THE MONTH AND ONE TABLET TWICE DAILY ON EVEN DAYS
     Route: 048

REACTIONS (2)
  - Mental disorder [Unknown]
  - Off label use [Unknown]
